FAERS Safety Report 6074668-0 (Version None)
Quarter: 2009Q1

REPORT INFORMATION
  Report Type: 
  Country: None (occurrence: None)
  Receive Date: 20090212
  Receipt Date: 20090202
  Transmission Date: 20090719
  Serious: Yes (Other)
  Sender: FDA-Public Use
  Company Number: US-RB-008797-09

PATIENT
  Age: 63 Year
  Sex: Female

DRUGS (4)
  1. MUCINEX DM [Suspect]
     Route: 048
     Dates: start: 20081224, end: 20081225
  2. MUCINEX DM [Suspect]
     Route: 048
     Dates: start: 20090116, end: 20090116
  3. TEGRETOL [Concomitant]
  4. LOPERAMIDE HCL [Concomitant]

REACTIONS (1)
  - CONVULSION [None]
